FAERS Safety Report 4836295-X (Version None)
Quarter: 2005Q4

REPORT INFORMATION
  Report Type: 
  Country: None (occurrence: None)
  Receive Date: 20051123
  Receipt Date: 20051110
  Transmission Date: 20060501
  Serious: Yes (Hospitalization, Other)
  Sender: FDA-Public Use
  Company Number: JP-JNJFOC-20051104859

PATIENT
  Age: 33 Year
  Sex: Female

DRUGS (5)
  1. RISPERDAL [Suspect]
     Route: 048
  2. RISPERDAL [Suspect]
     Indication: SCHIZOPHRENIA
     Route: 048
  3. LITHIUM CARBONATE [Interacting]
     Indication: SCHIZOPHRENIA
     Route: 048
  4. LEVOMEPROMAZINE MALEATE [Interacting]
     Indication: SCHIZOPHRENIA
     Route: 048
  5. OLANZAPINE [Concomitant]

REACTIONS (2)
  - DRUG INTERACTION [None]
  - ELECTROCARDIOGRAM QT CORRECTED INTERVAL PROLONGED [None]
